FAERS Safety Report 8091591-0 (Version None)
Quarter: 2012Q1

REPORT INFORMATION
  Report Type: 
  Country: None (occurrence: None)
  Receive Date: 20120131
  Receipt Date: 20120126
  Transmission Date: 20120608
  Serious: No
  Sender: FDA-Public Use
  Company Number: US-PFIZER INC-2012023246

PATIENT
  Sex: Female
  Weight: 62.132 kg

DRUGS (7)
  1. DEMEROL [Concomitant]
     Dosage: UNK
  2. OXYCODONE [Concomitant]
     Indication: PAIN
     Dosage: 5 MG, AS NEEDED
     Route: 048
  3. PRIMACOR [Concomitant]
     Indication: EMPHYSEMA
     Dosage: 0.5 MG, 2X/DAY
  4. DIAZEPAM [Concomitant]
     Indication: ANXIETY
     Dosage: 10 MG, 2X/DAY
     Route: 048
  5. NEXIUM [Concomitant]
     Indication: GASTROOESOPHAGEAL REFLUX DISEASE
     Dosage: 40 MG, DAILY
     Route: 048
  6. MORPHINE SULFATE [Suspect]
     Dosage: UNK
  7. PENICILLIN G POTASSIUM [Suspect]
     Dosage: UNK

REACTIONS (4)
  - URTICARIA [None]
  - NAUSEA [None]
  - DRUG HYPERSENSITIVITY [None]
  - DYSPNOEA [None]
